FAERS Safety Report 20949075 (Version 2)
Quarter: 2022Q3

REPORT INFORMATION
  Report Type: Spontaneous
  Country: JP (occurrence: JP)
  Receive Date: 20220613
  Receipt Date: 20220714
  Transmission Date: 20221027
  Serious: Yes (Other)
  Sender: FDA-Public Use
  Company Number: JP-NOVARTISPH-NVSJ2022JP092036

PATIENT
  Age: 86 Year
  Sex: Male

DRUGS (3)
  1. ENTRESTO [Suspect]
     Active Substance: SACUBITRIL\VALSARTAN
     Indication: Hypertension
     Dosage: 50 MG, BID
     Route: 048
  2. ENTRESTO [Suspect]
     Active Substance: SACUBITRIL\VALSARTAN
     Indication: Cardiac failure
     Dosage: 50 MG, QD
     Route: 048
     Dates: start: 20220607
  3. ALDOMET [Concomitant]
     Active Substance: METHYLDOPA
     Indication: Product used for unknown indication
     Dosage: 50 MG
     Route: 048
     Dates: end: 20220607

REACTIONS (2)
  - Renal impairment [Not Recovered/Not Resolved]
  - Inappropriate schedule of product administration [Unknown]
